FAERS Safety Report 16300978 (Version 2)
Quarter: 2021Q1

REPORT INFORMATION
  Report Type: Spontaneous
  Country: US (occurrence: US)
  Receive Date: 20190510
  Receipt Date: 20210303
  Transmission Date: 20210419
  Serious: Yes (Disabling, Other)
  Sender: FDA-Public Use
  Company Number: US-ASTRAZENECA-2019SE63939

PATIENT
  Age: 35 Year
  Sex: Female
  Weight: 99.8 kg

DRUGS (110)
  1. PRILOSEC [Suspect]
     Active Substance: OMEPRAZOLE MAGNESIUM
     Indication: GASTROOESOPHAGEAL REFLUX DISEASE
     Route: 048
     Dates: start: 201201, end: 201401
  2. SEROQUEL [Concomitant]
     Active Substance: QUETIAPINE FUMARATE
  3. CITALOPRAM [Concomitant]
     Active Substance: CITALOPRAM HYDROBROMIDE
     Indication: BIPOLAR DISORDER
  4. BRETHINE [Concomitant]
     Active Substance: TERBUTALINE SULFATE
  5. DICYCLOMINE [Concomitant]
     Active Substance: DICYCLOMINE HYDROCHLORIDE
  6. PHENTERMINE. [Concomitant]
     Active Substance: PHENTERMINE
  7. VOLTAREN [Concomitant]
     Active Substance: DICLOFENAC SODIUM
  8. ATROVENT [Concomitant]
     Active Substance: IPRATROPIUM BROMIDE
  9. PRILOSEC [Suspect]
     Active Substance: OMEPRAZOLE MAGNESIUM
     Indication: GASTROOESOPHAGEAL REFLUX DISEASE
     Route: 048
     Dates: start: 2009, end: 2015
  10. AMBIEN [Concomitant]
     Active Substance: ZOLPIDEM TARTRATE
  11. HYDROXYZINE [Concomitant]
     Active Substance: HYDROXYZINE HYDROCHLORIDE
     Indication: ANXIETY
  12. LEVETIRACETAM. [Concomitant]
     Active Substance: LEVETIRACETAM
  13. MORPHINE [Concomitant]
     Active Substance: MORPHINE
     Indication: FIBROMYALGIA
  14. AMLODIPINE [Concomitant]
     Active Substance: AMLODIPINE BESYLATE
  15. ALEVE [Concomitant]
     Active Substance: NAPROXEN SODIUM
  16. PREVIDENT [Concomitant]
     Active Substance: SODIUM FLUORIDE
  17. NABUMETONE. [Concomitant]
     Active Substance: NABUMETONE
  18. LITHIUM. [Concomitant]
     Active Substance: LITHIUM
  19. VICTOZA [Concomitant]
     Active Substance: LIRAGLUTIDE
  20. HYDROMET [Concomitant]
     Active Substance: HOMATROPINE METHYLBROMIDE\HYDROCODONE BITARTRATE
  21. BENZONATATE. [Concomitant]
     Active Substance: BENZONATATE
  22. NEXIUM [Suspect]
     Active Substance: ESOMEPRAZOLE MAGNESIUM
     Indication: GASTROOESOPHAGEAL REFLUX DISEASE
     Route: 048
     Dates: start: 201201, end: 201401
  23. ALPRAZOLAM. [Concomitant]
     Active Substance: ALPRAZOLAM
     Indication: ANXIETY
  24. HYDROCODONE [Concomitant]
     Active Substance: HYDROCODONE
     Indication: PAIN
  25. IBUPROFEN. [Concomitant]
     Active Substance: IBUPROFEN
     Indication: PAIN
  26. TRADJENTA [Concomitant]
     Active Substance: LINAGLIPTIN
  27. AUGMENTIN [Concomitant]
     Active Substance: AMOXICILLIN\CLAVULANATE POTASSIUM
  28. SILVER SULFA [Concomitant]
  29. LEVOFLOXACIN. [Concomitant]
     Active Substance: LEVOFLOXACIN
  30. AMITIZA [Concomitant]
     Active Substance: LUBIPROSTONE
  31. BENAZEPRIL [Concomitant]
     Active Substance: BENAZEPRIL HYDROCHLORIDE
  32. NARCAN [Concomitant]
     Active Substance: NALOXONE HYDROCHLORIDE
  33. RISAQUAD [Concomitant]
     Active Substance: DIETARY SUPPLEMENT\PROBIOTICS
  34. NEXIUM [Suspect]
     Active Substance: ESOMEPRAZOLE MAGNESIUM
     Indication: GASTROOESOPHAGEAL REFLUX DISEASE
     Route: 048
     Dates: start: 2009, end: 2014
  35. CELEXA [Concomitant]
     Active Substance: CITALOPRAM HYDROBROMIDE
  36. METOPROLOL. [Concomitant]
     Active Substance: METOPROLOL
     Indication: HYPERTENSION
  37. GABAPENTIN. [Concomitant]
     Active Substance: GABAPENTIN
     Indication: FIBROMYALGIA
  38. MORPHINE [Concomitant]
     Active Substance: MORPHINE
     Indication: PAIN
  39. TUMS [Concomitant]
     Active Substance: CALCIUM CARBONATE
  40. CLEOCIN [Concomitant]
     Active Substance: CLINDAMYCIN PHOSPHATE
  41. DOXYCYCLINE HYCLATE. [Concomitant]
     Active Substance: DOXYCYCLINE HYCLATE
  42. PROPO?N/APAP [Concomitant]
  43. KLOR?CON [Concomitant]
     Active Substance: POTASSIUM CHLORIDE
  44. ZOLPIDEM [Concomitant]
     Active Substance: ZOLPIDEM TARTRATE
  45. ROSUVASTATIN CALCIUM. [Concomitant]
     Active Substance: ROSUVASTATIN CALCIUM
  46. ABILIFY [Concomitant]
     Active Substance: ARIPIPRAZOLE
  47. LYRICA [Concomitant]
     Active Substance: PREGABALIN
  48. PROVENTIL [Concomitant]
     Active Substance: ALBUTEROL
  49. BUDEPRION [Concomitant]
     Active Substance: BUPROPION HYDROCHLORIDE
  50. NOVOLOG [Concomitant]
     Active Substance: INSULIN ASPART
  51. IOPAMIDOL [Concomitant]
     Active Substance: IOPAMIDOL
  52. FLAGYL [Concomitant]
     Active Substance: METRONIDAZOLE\METRONIDAZOLE HYDROCHLORIDE
  53. DIVALPROEX [Concomitant]
     Active Substance: DIVALPROEX SODIUM
  54. CYMBALTA [Concomitant]
     Active Substance: DULOXETINE HYDROCHLORIDE
  55. CIPRO [Concomitant]
     Active Substance: CIPROFLOXACIN HYDROCHLORIDE
  56. PROMETHAZINE [Concomitant]
     Active Substance: PROMETHAZINE HYDROCHLORIDE
  57. CLOBETASOL [Concomitant]
     Active Substance: CLOBETASOL
  58. PROBIOTIC [Concomitant]
     Active Substance: PROBIOTICS NOS
  59. AMOXICILLIN. [Concomitant]
     Active Substance: AMOXICILLIN
  60. BENADRYL [Concomitant]
     Active Substance: DIPHENHYDRAMINE HYDROCHLORIDE
     Indication: PRURITUS
  61. TYLENOL [Concomitant]
     Active Substance: ACETAMINOPHEN
     Indication: PAIN
  62. AXID [Concomitant]
     Active Substance: NIZATIDINE
  63. ZYPREXA [Concomitant]
     Active Substance: OLANZAPINE
  64. HEMOCYTE [Concomitant]
  65. TRIMOX [Concomitant]
     Active Substance: AMOXICILLIN
  66. HYDROXYZINE HYDROCHLORIDE. [Concomitant]
     Active Substance: HYDROXYZINE HYDROCHLORIDE
  67. MIRTAZAPINE. [Concomitant]
     Active Substance: MIRTAZAPINE
  68. METAXALONE. [Concomitant]
     Active Substance: METAXALONE
  69. SODIUM CHLORIDE. [Concomitant]
     Active Substance: SODIUM CHLORIDE
  70. TRAZODONE [Concomitant]
     Active Substance: TRAZODONE HYDROCHLORIDE
     Indication: SLEEP DISORDER
  71. CYCLOBENZAPRINE. [Concomitant]
     Active Substance: CYCLOBENZAPRINE
     Indication: MUSCLE SPASMS
  72. BACLOFEN. [Concomitant]
     Active Substance: BACLOFEN
     Indication: PAIN
  73. PEPCID [Concomitant]
     Active Substance: FAMOTIDINE
  74. ZANTAC [Concomitant]
     Active Substance: RANITIDINE HYDROCHLORIDE
  75. ALKA?SELTZER [Concomitant]
     Active Substance: ANHYDROUS CITRIC ACID\ASPIRIN\SODIUM BICARBONATE
  76. METFORMIN HYDROCHLORIDE. [Concomitant]
     Active Substance: METFORMIN HYDROCHLORIDE
  77. METROGEL [Concomitant]
     Active Substance: METRONIDAZOLE
  78. ACETAMI/CODEIN [Concomitant]
  79. ULTRACET [Concomitant]
     Active Substance: ACETAMINOPHEN\TRAMADOL HYDROCHLORIDE
  80. METOPROLOL TARTRATE. [Concomitant]
     Active Substance: METOPROLOL TARTRATE
  81. HYDROXYZINE PAMOATE. [Concomitant]
     Active Substance: HYDROXYZINE PAMOATE
  82. MORPHINE SULFATE. [Concomitant]
     Active Substance: MORPHINE SULFATE
  83. HYDROXYCHLOROTHIAZIDE [Concomitant]
  84. SUMATRIPTAN. [Concomitant]
     Active Substance: SUMATRIPTAN
  85. DECADRON [Concomitant]
     Active Substance: DEXAMETHASONE
  86. LACTULOSE. [Concomitant]
     Active Substance: LACTULOSE
  87. SYMBICORT [Concomitant]
     Active Substance: BUDESONIDE\FORMOTEROL FUMARATE DIHYDRATE
  88. MAGNESIUM SULFATE. [Concomitant]
     Active Substance: MAGNESIUM SULFATE
  89. PRILOSEC [Suspect]
     Active Substance: OMEPRAZOLE MAGNESIUM
     Indication: GASTROOESOPHAGEAL REFLUX DISEASE
     Dosage: GENERIC
     Route: 065
     Dates: start: 2009, end: 2015
  90. OXYCODONE [Concomitant]
     Active Substance: OXYCODONE
     Indication: PAIN
  91. QUETIAPINE. [Concomitant]
     Active Substance: QUETIAPINE
  92. LORAZEPAM. [Concomitant]
     Active Substance: LORAZEPAM
  93. TOPIRAMATE. [Concomitant]
     Active Substance: TOPIRAMATE
  94. RANITIDINE. [Concomitant]
     Active Substance: RANITIDINE
  95. MILK OF MAGNESIA [Concomitant]
     Active Substance: MAGNESIUM HYDROXIDE
  96. FERROUS SULFATE. [Concomitant]
     Active Substance: FERROUS SULFATE
  97. SPECTAZOLE [Concomitant]
     Active Substance: ECONAZOLE NITRATE
  98. MACROBID [Concomitant]
     Active Substance: NITROFURANTOIN\NITROFURANTOIN MONOHYDRATE
  99. FLOXIN [Concomitant]
     Active Substance: OFLOXACIN
  100. DIFLUCAN [Concomitant]
     Active Substance: FLUCONAZOLE
  101. PREDNISONE. [Concomitant]
     Active Substance: PREDNISONE
  102. BUSPIRONE HYDROCHLORIDE. [Concomitant]
     Active Substance: BUSPIRONE HYDROCHLORIDE
  103. OXYCONTIN [Concomitant]
     Active Substance: OXYCODONE HYDROCHLORIDE
  104. VIIBRYD [Concomitant]
     Active Substance: VILAZODONE HYDROCHLORIDE
  105. CARISOPRODOL. [Concomitant]
     Active Substance: CARISOPRODOL
  106. LAMICTAL [Concomitant]
     Active Substance: LAMOTRIGINE
  107. ACTOS [Concomitant]
     Active Substance: PIOGLITAZONE HYDROCHLORIDE
  108. AMRIX [Concomitant]
     Active Substance: CYCLOBENZAPRINE HYDROCHLORIDE
  109. IMODIUM [Concomitant]
     Active Substance: LOPERAMIDE HYDROCHLORIDE
  110. VANCOMYCIN [Concomitant]
     Active Substance: VANCOMYCIN

REACTIONS (8)
  - Fibromyalgia [Unknown]
  - Anxiety [Unknown]
  - Mania [Unknown]
  - Acute kidney injury [Unknown]
  - Renal failure [Not Recovered/Not Resolved]
  - Systemic lupus erythematosus [Unknown]
  - Neuropathy peripheral [Unknown]
  - Bipolar I disorder [Unknown]

NARRATIVE: CASE EVENT DATE: 2011
